FAERS Safety Report 4923512-0 (Version None)
Quarter: 2006Q1

REPORT INFORMATION
  Report Type: 
  Country: None (occurrence: None)
  Receive Date: 20060227
  Receipt Date: 20060217
  Transmission Date: 20060701
  Serious: Yes (Hospitalization)
  Sender: FDA-Public Use
  Company Number: US-AVENTIS-200611648US

PATIENT

DRUGS (1)
  1. LOVENOX [Suspect]
     Dosage: DOSE: UNK

REACTIONS (4)
  - COAGULATION TIME SHORTENED [None]
  - GENERALISED OEDEMA [None]
  - NEONATAL DISORDER [None]
  - RENAL FAILURE [None]
